FAERS Safety Report 21770488 (Version 1)
Quarter: 2022Q4

REPORT INFORMATION
  Report Type: Spontaneous
  Country: JP (occurrence: JP)
  Receive Date: 20221223
  Receipt Date: 20221223
  Transmission Date: 20230113
  Serious: Yes (Death)
  Sender: FDA-Public Use
  Company Number: JP-002147023-NVSJ2022JP276897

PATIENT
  Age: 80 Year
  Sex: Male

DRUGS (1)
  1. LUCENTIS [Suspect]
     Active Substance: RANIBIZUMAB
     Indication: Age-related macular degeneration
     Dosage: 0.5 MG, MOST RECENT DOSE 17/NOV/2022
     Route: 050
     Dates: start: 20221117

REACTIONS (1)
  - Death [Fatal]

NARRATIVE: CASE EVENT DATE: 20221206
